FAERS Safety Report 24283833 (Version 2)
Quarter: 2024Q3

REPORT INFORMATION
  Report Type: Spontaneous
  Country: US (occurrence: US)
  Receive Date: 20240905
  Receipt Date: 20240920
  Transmission Date: 20241017
  Serious: Yes (Hospitalization)
  Sender: TEVA
  Company Number: US-TEVA-VS-3238451

PATIENT
  Age: 87 Year
  Sex: Male

DRUGS (7)
  1. VERAPAMIL [Suspect]
     Active Substance: VERAPAMIL HYDROCHLORIDE
     Indication: Atrial flutter
     Route: 048
  2. DRONEDARONE [Suspect]
     Active Substance: DRONEDARONE
     Indication: Atrial flutter
     Route: 065
  3. AMIODARONE [Suspect]
     Active Substance: AMIODARONE
     Indication: Atrial flutter
     Route: 065
  4. LIDOCAINE [Suspect]
     Active Substance: LIDOCAINE
     Indication: Ventricular tachycardia
     Route: 042
  5. MEXILETINE [Concomitant]
     Active Substance: MEXILETINE
     Indication: Atrial flutter
     Dosage: THREE TIMES DAILY
  6. RIVAROXABAN [Concomitant]
     Active Substance: RIVAROXABAN
     Indication: Product used for unknown indication
  7. SOTALOL [Suspect]
     Active Substance: SOTALOL\SOTALOL HYDROCHLORIDE
     Indication: Atrial flutter
     Route: 065

REACTIONS (3)
  - Drug ineffective [Unknown]
  - Hypotension [Unknown]
  - Eye disorder [Unknown]
